FAERS Safety Report 5104483-3 (Version None)
Quarter: 2006Q3

REPORT INFORMATION
  Report Type: 
  Country: None (occurrence: None)
  Receive Date: 20060911
  Receipt Date: 20060824
  Transmission Date: 20061208
  Serious: Yes (Hospitalization, Disabling)
  Sender: FDA-Public Use
  Company Number: JP-2005-021578

PATIENT
  Age: 54 Year
  Sex: Female
  Weight: 57 kg

DRUGS (26)
  1. BETAFERON [Suspect]
     Indication: RELAPSING-REMITTING MULTIPLE SCLEROSIS
     Dosage: SEE IMAGE
     Route: 058
     Dates: start: 20021216, end: 20021225
  2. BETAFERON [Suspect]
     Indication: RELAPSING-REMITTING MULTIPLE SCLEROSIS
     Dosage: SEE IMAGE
     Route: 058
     Dates: start: 20021226, end: 20030630
  3. BETAFERON [Suspect]
     Indication: RELAPSING-REMITTING MULTIPLE SCLEROSIS
     Dosage: SEE IMAGE
     Route: 058
     Dates: start: 20030701, end: 20030925
  4. BETAFERON [Suspect]
     Indication: RELAPSING-REMITTING MULTIPLE SCLEROSIS
     Dosage: SEE IMAGE
     Route: 058
     Dates: start: 20030927, end: 20031007
  5. BETAFERON [Suspect]
     Indication: RELAPSING-REMITTING MULTIPLE SCLEROSIS
     Dosage: SEE IMAGE
     Route: 058
     Dates: start: 20031009, end: 20031208
  6. BETAFERON [Suspect]
     Indication: RELAPSING-REMITTING MULTIPLE SCLEROSIS
     Dosage: SEE IMAGE
     Route: 058
     Dates: start: 20031220, end: 20040331
  7. BETAFERON [Suspect]
     Indication: RELAPSING-REMITTING MULTIPLE SCLEROSIS
     Dosage: SEE IMAGE
     Route: 058
     Dates: start: 20040401, end: 20040416
  8. BETAFERON [Suspect]
     Indication: RELAPSING-REMITTING MULTIPLE SCLEROSIS
     Dosage: SEE IMAGE
     Route: 058
     Dates: start: 20040504, end: 20040610
  9. BETAFERON [Suspect]
     Indication: RELAPSING-REMITTING MULTIPLE SCLEROSIS
     Dosage: SEE IMAGE
     Route: 058
     Dates: start: 20040612, end: 20040904
  10. BETAFERON [Suspect]
     Indication: RELAPSING-REMITTING MULTIPLE SCLEROSIS
     Dosage: SEE IMAGE
     Route: 058
     Dates: start: 20040906, end: 20041028
  11. BETAFERON [Suspect]
     Indication: RELAPSING-REMITTING MULTIPLE SCLEROSIS
     Dosage: SEE IMAGE
     Route: 058
     Dates: start: 20041029, end: 20041220
  12. BETAFERON [Suspect]
     Indication: RELAPSING-REMITTING MULTIPLE SCLEROSIS
     Dosage: SEE IMAGE
     Route: 058
     Dates: start: 20041221, end: 20050107
  13. BETAFERON [Suspect]
     Indication: RELAPSING-REMITTING MULTIPLE SCLEROSIS
     Dosage: SEE IMAGE
     Route: 058
     Dates: start: 20050123, end: 20050513
  14. BETAFERON [Suspect]
     Indication: RELAPSING-REMITTING MULTIPLE SCLEROSIS
     Dosage: SEE IMAGE
     Route: 058
     Dates: start: 20050514, end: 20050720
  15. BETAFERON [Suspect]
     Indication: RELAPSING-REMITTING MULTIPLE SCLEROSIS
     Dosage: SEE IMAGE
     Route: 058
     Dates: start: 20050721, end: 20051016
  16. TOLEDOMIN                (MILNACIPRAN HYDROCHLORIDE) [Concomitant]
  17. JUVELA N                       (TOCOPHERYL NICOTINATE) [Concomitant]
  18. MECOBALAMIN (METHYCOBIDE)MECOBALAMIN [Concomitant]
  19. AMOBAN (ZOPICLONE) [Concomitant]
  20. CLONAZEPAM [Concomitant]
  21. FAMOTIDINE (GASMET) (FAMOTIDINE) [Concomitant]
  22. TEGRETOL [Concomitant]
  23. NAIXAN (NAPROXEN SODIUM) [Concomitant]
  24. MUCOSTA (REBAMIPIDE) [Concomitant]
  25. PURSENNID /SCH (SENNOSIDE A+B, SENNOSIDE A+B CALCIUM) [Concomitant]
  26. MAGNESIUM OXIDE [Concomitant]

REACTIONS (5)
  - ACARODERMATITIS [None]
  - CEREBRAL HAEMORRHAGE [None]
  - FALL [None]
  - HEPATIC FUNCTION ABNORMAL [None]
  - PSYCHIATRIC SYMPTOM [None]
